FAERS Safety Report 8773383 (Version 2)
Quarter: 2012Q4

REPORT INFORMATION
  Report Type: Report from Study
  Country: CA (occurrence: CA)
  Receive Date: 20120907
  Receipt Date: 20120928
  Transmission Date: 20130627
  Serious: Yes (Hospitalization)
  Sender: FDA-Public Use
  Company Number: CA-JNJFOC-20120815027

PATIENT
  Age: 42 Year
  Sex: Male

DRUGS (30)
  1. REMICADE [Suspect]
     Indication: ANKYLOSING SPONDYLITIS
     Route: 042
     Dates: start: 20070529
  2. REMICADE [Suspect]
     Indication: CROHN^S DISEASE
     Route: 042
     Dates: start: 20070529
  3. COUMADIN [Concomitant]
     Indication: CEREBROVASCULAR ACCIDENT
     Route: 048
     Dates: start: 19880101
  4. CALCIUM [Concomitant]
     Indication: NUTRITIONAL SUPPORT
     Route: 048
     Dates: start: 20040101, end: 20111121
  5. NEXIUM [Concomitant]
     Indication: DYSPEPSIA
     Route: 048
     Dates: start: 20040101
  6. FOSAMAX [Concomitant]
     Indication: OSTEOPOROSIS
     Route: 048
     Dates: start: 20040101
  7. CLINDAMYCIN [Concomitant]
     Indication: HERPES ZOSTER
     Route: 048
     Dates: start: 20090924, end: 20091006
  8. PREDNISONE [Concomitant]
     Indication: ANKYLOSING SPONDYLITIS
     Route: 048
     Dates: start: 20080306, end: 20090903
  9. PREDNISONE [Concomitant]
     Indication: ANKYLOSING SPONDYLITIS
     Route: 048
     Dates: start: 20090904, end: 20110825
  10. PREDNISONE [Concomitant]
     Indication: ANKYLOSING SPONDYLITIS
     Route: 048
     Dates: start: 20110826, end: 20120509
  11. PREDNISONE [Concomitant]
     Indication: ANKYLOSING SPONDYLITIS
     Route: 048
     Dates: start: 20120510
  12. PREDNISONE [Concomitant]
     Indication: HERPES ZOSTER
     Route: 048
     Dates: start: 20080306, end: 20090903
  13. PREDNISONE [Concomitant]
     Indication: HERPES ZOSTER
     Route: 048
     Dates: start: 20090904, end: 20110825
  14. PREDNISONE [Concomitant]
     Indication: HERPES ZOSTER
     Route: 048
     Dates: start: 20110826, end: 20120509
  15. PREDNISONE [Concomitant]
     Indication: HERPES ZOSTER
     Route: 048
     Dates: start: 20120510
  16. OXAZEPAM [Concomitant]
     Indication: SLEEP DISORDER
     Route: 048
     Dates: start: 20081121, end: 200812
  17. OXAZEPAM [Concomitant]
     Indication: SLEEP DISORDER
     Route: 048
     Dates: start: 20120419
  18. ALVESCO [Concomitant]
     Route: 065
     Dates: start: 20110403, end: 20110424
  19. NORVASC [Concomitant]
     Indication: HYPERTENSION
     Route: 048
     Dates: start: 20111201, end: 201201
  20. INDAPAMIDE [Concomitant]
     Route: 048
     Dates: start: 20120323
  21. VALACYCLOVIR [Concomitant]
     Indication: RASH
     Route: 048
     Dates: start: 20120614
  22. VALACYCLOVIR [Concomitant]
     Indication: RASH
     Route: 048
     Dates: start: 20090825, end: 20090922
  23. VALACYCLOVIR [Concomitant]
     Indication: HERPES ZOSTER
     Route: 048
     Dates: start: 20090825, end: 20090922
  24. VALACYCLOVIR [Concomitant]
     Indication: HERPES ZOSTER
     Route: 048
     Dates: start: 20120614
  25. CLOBETASOL [Concomitant]
     Indication: PURPURA
     Route: 065
     Dates: start: 200807
  26. DILAUDID [Concomitant]
     Route: 048
  27. LYRICA [Concomitant]
     Route: 048
     Dates: start: 20101019
  28. ADALAT [Concomitant]
     Indication: HYPERTENSION
     Route: 065
     Dates: start: 20101103
  29. AVELOX [Concomitant]
     Route: 048
     Dates: start: 20110418, end: 20110422
  30. ALL OTHER THERAPEUTICS [Concomitant]
     Indication: TINEA PEDIS
     Route: 048
     Dates: start: 20100210, end: 20100228

REACTIONS (2)
  - Multiple fractures [Recovering/Resolving]
  - Fall [Recovering/Resolving]
